FAERS Safety Report 16655383 (Version 2)
Quarter: 2020Q3

REPORT INFORMATION
  Report Type: Spontaneous
  Country: US (occurrence: US)
  Receive Date: 20190801
  Receipt Date: 20200730
  Transmission Date: 20201102
  Serious: No
  Sender: FDA-Public Use
  Company Number: US-AUROBINDO-AUR-APL-2019-039636

PATIENT
  Sex: Female
  Weight: 59 kg

DRUGS (1)
  1. ALPRAZOLAM EXTENDED?RELEASE TABLETS [Suspect]
     Active Substance: ALPRAZOLAM
     Indication: PANIC ATTACK
     Dosage: 1 MILLIGRAM, TWO TIMES A DAY
     Route: 048

REACTIONS (2)
  - Therapy partial responder [Unknown]
  - Prescribed overdose [Unknown]
